FAERS Safety Report 24286352 (Version 1)
Quarter: 2024Q3

REPORT INFORMATION
  Report Type: Spontaneous
  Country: US (occurrence: US)
  Receive Date: 20240905
  Receipt Date: 20240905
  Transmission Date: 20241016
  Serious: No
  Sender: ULTRAGENYX PHARMACEUTICAL
  Company Number: US-Ultragenyx Pharmaceutical Inc.-US-UGNX-22-00798

PATIENT
  Age: 2 Year
  Sex: Female

DRUGS (5)
  1. DOJOLVI [Suspect]
     Active Substance: TRIHEPTANOIN
     Indication: Pyruvate carboxylase deficiency
     Dosage: 5 MILLILITER, Q8H
     Route: 048
     Dates: start: 20220909, end: 20221025
  2. DOJOLVI [Suspect]
     Active Substance: TRIHEPTANOIN
     Dosage: 2 MILLILITER, Q8H
     Route: 048
     Dates: start: 20221025, end: 20221116
  3. DOJOLVI [Suspect]
     Active Substance: TRIHEPTANOIN
     Dosage: 5 MILLILITER, Q8H
     Route: 048
     Dates: start: 20221116
  4. PEDIA SURE [Concomitant]
     Indication: Product used for unknown indication
  5. CITRIC ACID, 1-STEARYL ESTER\SODIUM CITRATE [Concomitant]
     Active Substance: CITRIC ACID, 1-STEARYL ESTER\SODIUM CITRATE
     Indication: Product used for unknown indication

REACTIONS (2)
  - Gastroenteritis viral [Recovered/Resolved]
  - Off label use [Unknown]

NARRATIVE: CASE EVENT DATE: 20221025
